FAERS Safety Report 5300359-7 (Version None)
Quarter: 2007Q2

REPORT INFORMATION
  Report Type: 
  Country: None (occurrence: None)
  Receive Date: 20070411
  Receipt Date: 20070326
  Transmission Date: 20071010
  Serious: Yes (Death, Other)
  Sender: FDA-Public Use
  Company Number: 2006JP002509

PATIENT
  Age: 33 Year
  Sex: Male

DRUGS (1)
  1. PROGRAF [Suspect]
     Indication: LIVER TRANSPLANT

REACTIONS (6)
  - ACIDOSIS [None]
  - CONTINUOUS HAEMODIAFILTRATION [None]
  - GRAFT THROMBOSIS [None]
  - HEPATIC ARTERY THROMBOSIS [None]
  - RENAL FAILURE [None]
  - THROMBOTIC MICROANGIOPATHY [None]
